FAERS Safety Report 10211738 (Version 1)
Quarter: 2014Q2

REPORT INFORMATION
  Report Type: Spontaneous
  Country: CN (occurrence: CN)
  Receive Date: 20140602
  Receipt Date: 20140602
  Transmission Date: 20141212
  Serious: Yes (Other)
  Sender: FDA-Public Use
  Company Number: CN-ROCHE-1407152

PATIENT
  Age: 90 Year
  Sex: Female
  Weight: 43 kg

DRUGS (5)
  1. ROCEPHIN [Suspect]
     Indication: CHOLANGITIS
     Route: 041
     Dates: start: 20130421, end: 20130424
  2. ORNIDAZOLE [Suspect]
     Indication: CHOLANGITIS
     Route: 041
     Dates: start: 20130421, end: 20130423
  3. MEZLOCILLIN SODIUM [Suspect]
     Indication: ABDOMINAL PAIN
     Route: 041
     Dates: start: 20130420, end: 20130420
  4. SODIUM CHLORIDE [Suspect]
     Indication: CHOLANGITIS
     Route: 041
     Dates: start: 20130421, end: 20130423
  5. MAGNESIUM ISOGLYCYRRHIZINATE [Concomitant]
     Route: 041
     Dates: start: 20130421, end: 20130506

REACTIONS (6)
  - Rash [Recovered/Resolved]
  - Chest discomfort [Recovered/Resolved]
  - Dyspnoea [Recovered/Resolved]
  - Pruritus [Recovered/Resolved]
  - Oedema peripheral [Recovered/Resolved]
  - Face oedema [Recovered/Resolved]
